FAERS Safety Report 13898915 (Version 1)
Quarter: 2017Q3

REPORT INFORMATION
  Report Type: Spontaneous
  Country: US (occurrence: US)
  Receive Date: 20170824
  Receipt Date: 20170824
  Transmission Date: 20171127
  Serious: No
  Sender: FDA-Public Use
  Company Number: US-ASTRAZENECA-2017SE85990

PATIENT
  Age: 893 Month
  Sex: Male
  Weight: 104.3 kg

DRUGS (21)
  1. ONDANSETRON HYDROCHLORIDE. [Concomitant]
     Active Substance: ONDANSETRON HYDROCHLORIDE
     Indication: NAUSEA
     Dosage: 4.0MG AS REQUIRED
     Route: 048
     Dates: start: 2016
  2. VENTOLIN [Concomitant]
     Active Substance: ALBUTEROL SULFATE
     Indication: INHALATION THERAPY
     Dosage: AS REQUIRED
     Route: 055
  3. DUCOLUX [Concomitant]
     Indication: CONSTIPATION
     Route: 048
  4. MECLAZINE [Concomitant]
     Indication: DIZZINESS
     Route: 048
  5. NYSTATIN. [Concomitant]
     Active Substance: NYSTATIN
     Indication: TINEA CRURIS
     Route: 061
  6. CLONAZEPAM. [Concomitant]
     Active Substance: CLONAZEPAM
     Indication: DEPRESSION
     Route: 048
  7. HYDROCORTISONE. [Concomitant]
     Active Substance: HYDROCORTISONE
     Indication: ARTHROPOD BITE
     Route: 061
  8. PLAVIX [Concomitant]
     Active Substance: CLOPIDOGREL BISULFATE
     Indication: DEEP VEIN THROMBOSIS
     Route: 048
     Dates: start: 2014
  9. AMLODIPINE [Concomitant]
     Active Substance: AMLODIPINE BESYLATE
     Indication: HYPERTENSION
     Route: 048
  10. AMITRIPTYLINE HYDROCHLORIDE. [Concomitant]
     Active Substance: AMITRIPTYLINE HYDROCHLORIDE
     Indication: DEPRESSION
     Route: 048
  11. MECLAZINE [Concomitant]
     Indication: DIZZINESS
     Dosage: THREE TIMES A DAY
     Route: 048
     Dates: start: 2015
  12. SPIRIVA [Concomitant]
     Active Substance: TIOTROPIUM BROMIDE MONOHYDRATE
     Indication: CHEST DISCOMFORT
     Dosage: 1.25MCG TWO PUFFS ONCE A DAY AFTER BREAKFAST, USUALLY TAKES 2 PUFFS PER DAY
     Route: 055
     Dates: start: 201705
  13. VITAMIN D3 [Concomitant]
     Active Substance: CHOLECALCIFEROL
     Dosage: TWO 2000 UNITS DAILY
     Route: 048
  14. SYMBICORT [Suspect]
     Active Substance: BUDESONIDE\FORMOTEROL FUMARATE DIHYDRATE
     Indication: CHRONIC OBSTRUCTIVE PULMONARY DISEASE
     Dosage: 160-4.5MCG TWO PUFFS TWICE
     Route: 055
     Dates: start: 20170811
  15. ALLEGRA [Concomitant]
     Active Substance: FEXOFENADINE HYDROCHLORIDE
     Indication: HYPERSENSITIVITY
     Route: 048
  16. LIDOCAINE. [Concomitant]
     Active Substance: LIDOCAINE
     Indication: ARTHRALGIA
     Dosage: AT NIGHT
     Route: 061
  17. CENTRUM SILVER [Concomitant]
     Active Substance: MINERALS\VITAMINS
     Dosage: DAILY
     Route: 048
  18. MELATONIN [Concomitant]
     Active Substance: MELATONIN
     Indication: SLEEP DISORDER
     Route: 048
     Dates: start: 2014
  19. OXYGEN. [Concomitant]
     Active Substance: OXYGEN
     Dosage: 2 L ORDERED HS BUT SOMETIMES HE USES IN AFTERNOON
  20. PERCOCET [Concomitant]
     Active Substance: ACETAMINOPHEN\OXYCODONE HYDROCHLORIDE
     Indication: PAIN
     Dosage: TWICE A DAY AFTER BREAKFAST AND AT NIGHT
     Route: 048
  21. FLEET ENEMAS [Concomitant]
     Indication: CONSTIPATION

REACTIONS (11)
  - Dyspnoea [Not Recovered/Not Resolved]
  - Chest pain [Not Recovered/Not Resolved]
  - Nasal congestion [Unknown]
  - Oral candidiasis [Not Recovered/Not Resolved]
  - Sputum discoloured [Not Recovered/Not Resolved]
  - Pollakiuria [Not Recovered/Not Resolved]
  - Throat irritation [Not Recovered/Not Resolved]
  - Decreased appetite [Not Recovered/Not Resolved]
  - Dysphonia [Not Recovered/Not Resolved]
  - Back pain [Not Recovered/Not Resolved]
  - Headache [Not Recovered/Not Resolved]

NARRATIVE: CASE EVENT DATE: 201708
